FAERS Safety Report 4519153-X (Version None)
Quarter: 2004Q4

REPORT INFORMATION
  Report Type: 
  Country: None (occurrence: None)
  Receive Date: 20041206
  Receipt Date: 20041102
  Transmission Date: 20050328
  Serious: Yes (Hospitalization)
  Sender: FDA-Public Use
  Company Number: DE-ROCHE-385208

PATIENT
  Age: 65 Year
  Sex: Male

DRUGS (10)
  1. DACLIZUMAB [Suspect]
     Route: 042
     Dates: start: 20040923, end: 20040923
  2. DACLIZUMAB [Suspect]
     Route: 042
     Dates: start: 20040930
  3. MYCOPHENOLATE MOFETIL [Suspect]
     Route: 042
     Dates: start: 20040923, end: 20040927
  4. MYCOPHENOLATE MOFETIL [Suspect]
     Route: 048
     Dates: start: 20040928
  5. TACROLIMUS [Suspect]
     Route: 048
     Dates: start: 20040928, end: 20040930
  6. TACROLIMUS [Suspect]
     Route: 048
     Dates: start: 20041001
  7. HYDROCORTISONE [Suspect]
     Route: 065
     Dates: start: 20040923, end: 20040925
  8. HYDROCORTISONE [Suspect]
     Route: 065
     Dates: start: 20040926, end: 20040926
  9. PREDNISONE [Suspect]
     Route: 065
     Dates: start: 20040927, end: 20040930
  10. PREDNISONE [Suspect]
     Route: 065
     Dates: start: 20041001

REACTIONS (4)
  - ABDOMINAL PAIN [None]
  - CONSTIPATION [None]
  - CYTOMEGALOVIRUS INFECTION [None]
  - STAPHYLOCOCCAL INFECTION [None]
